FAERS Safety Report 4379332-1 (Version None)
Quarter: 2004Q2

REPORT INFORMATION
  Report Type: 
  Country: None (occurrence: None)
  Receive Date: 20040617
  Receipt Date: 20040608
  Transmission Date: 20050107
  Serious: Yes (Life-Threatening)
  Sender: FDA-Public Use
  Company Number: US-BRISTOL-MYERS SQUIBB COMPANY-12610929

PATIENT
  Age: 41 Year
  Sex: Male

DRUGS (4)
  1. EFAVIRENZ [Suspect]
     Indication: HIV INFECTION
     Dates: start: 20000119, end: 20021203
  2. STAVUDINE [Suspect]
     Indication: HIV INFECTION
     Dates: start: 20000119, end: 20021203
  3. INDINAVIR SULFATE [Suspect]
     Indication: HIV INFECTION
     Route: 048
     Dates: start: 20000119, end: 20021203
  4. RITONAVIR [Concomitant]
     Indication: HIV INFECTION
     Dates: start: 20000119, end: 20021203

REACTIONS (1)
  - MYOCARDIAL INFARCTION [None]
